FAERS Safety Report 25583097 (Version 1)
Quarter: 2025Q3

REPORT INFORMATION
  Report Type: Spontaneous
  Country: JP (occurrence: JP)
  Receive Date: 20250721
  Receipt Date: 20250721
  Transmission Date: 20251020
  Serious: Yes (Hospitalization)
  Sender: BOEHRINGER INGELHEIM
  Company Number: JP-BoehringerIngelheim-2025-BI-082809

PATIENT
  Age: 61 Year
  Sex: Female

DRUGS (1)
  1. AFATINIB [Suspect]
     Active Substance: AFATINIB
     Indication: Lung adenocarcinoma

REACTIONS (7)
  - Stress cardiomyopathy [Recovering/Resolving]
  - Ventricular tachycardia [Recovered/Resolved]
  - Malignant neoplasm progression [Unknown]
  - Circulatory collapse [Recovered/Resolved]
  - Respiratory failure [Recovered/Resolved]
  - Diarrhoea [Unknown]
  - Nausea [Unknown]
